FAERS Safety Report 13362110 (Version 1)
Quarter: 2017Q1

REPORT INFORMATION
  Report Type: Spontaneous
  Country: US (occurrence: US)
  Receive Date: 20170323
  Receipt Date: 20170323
  Transmission Date: 20170429
  Serious: Yes (Other)
  Sender: FDA-Public Use
  Company Number: US-GLAXOSMITHKLINE-US2017039460

PATIENT
  Age: 30 Year
  Sex: Female

DRUGS (2)
  1. BUPROPION TABLET [Suspect]
     Active Substance: BUPROPION
     Indication: DEPRESSION
     Dosage: UNK UNK, QD
     Route: 048
     Dates: start: 201410
  2. WELLBUTRIN SR [Suspect]
     Active Substance: BUPROPION HYDROCHLORIDE
     Indication: DEPRESSION
     Dosage: UNK
     Route: 048

REACTIONS (5)
  - Drug ineffective [Recovered/Resolved]
  - Mental disorder [Recovered/Resolved]
  - Suicidal ideation [Recovered/Resolved]
  - Product substitution issue [Unknown]
  - Depression [Recovered/Resolved]

NARRATIVE: CASE EVENT DATE: 201410
